FAERS Safety Report 23655888 (Version 1)
Quarter: 2024Q1

REPORT INFORMATION
  Report Type: Spontaneous
  Country: GB (occurrence: GB)
  Receive Date: 20240321
  Receipt Date: 20240321
  Transmission Date: 20240410
  Serious: Yes (Hospitalization, Other)
  Sender: FDA-Public Use
  Company Number: None

PATIENT
  Age: 59 Year
  Sex: Male

DRUGS (41)
  1. AMITRIPTYLINE [Suspect]
     Active Substance: AMITRIPTYLINE
     Dosage: ON ON HOLD
     Route: 065
  2. AMITRIPTYLINE [Suspect]
     Active Substance: AMITRIPTYLINE
     Indication: Product used for unknown indication
     Dosage: 30 MG (ON HOLD)
     Route: 065
  3. CITALOPRAM [Suspect]
     Active Substance: CITALOPRAM\CITALOPRAM HYDROBROMIDE
     Route: 065
  4. CITALOPRAM [Suspect]
     Active Substance: CITALOPRAM\CITALOPRAM HYDROBROMIDE
     Indication: Product used for unknown indication
     Dosage: 30 MG, QD (10MG TABLETS OD AND 20 MG TABLETS OD)
     Route: 065
  5. MIRTAZAPINE [Suspect]
     Active Substance: MIRTAZAPINE
     Dosage: ON ON HOLD
     Route: 065
  6. MIRTAZAPINE [Suspect]
     Active Substance: MIRTAZAPINE
     Indication: Product used for unknown indication
     Dosage: 30 MG (ON HOLD)
     Route: 065
  7. OLANZAPINE [Suspect]
     Active Substance: OLANZAPINE
     Dosage: ON HOLD
     Route: 065
  8. OLANZAPINE [Suspect]
     Active Substance: OLANZAPINE
     Indication: Product used for unknown indication
     Dosage: 20 MG (ON HOLD)
     Route: 065
  9. PREGABALIN [Suspect]
     Active Substance: PREGABALIN
     Dosage: ON HOLD
     Route: 065
  10. PREGABALIN [Suspect]
     Active Substance: PREGABALIN
     Indication: Product used for unknown indication
     Dosage: 50 MG, BID (ON HOLD)
     Route: 065
  11. PROMETHAZINE HYDROCHLORIDE [Suspect]
     Active Substance: PROMETHAZINE HYDROCHLORIDE
     Dosage: ON ON HOLD
     Route: 065
  12. PROMETHAZINE HYDROCHLORIDE [Suspect]
     Active Substance: PROMETHAZINE HYDROCHLORIDE
     Indication: Product used for unknown indication
     Dosage: 25 MG (ON HOLD)
     Route: 065
  13. TRAMADOL [Suspect]
     Active Substance: TRAMADOL\TRAMADOL HYDROCHLORIDE
     Dosage: 50MG-100MG 4-6HRLY ?TO PERMANENTLY DISCONTINUE
     Route: 065
  14. TRAMADOL [Suspect]
     Active Substance: TRAMADOL\TRAMADOL HYDROCHLORIDE
     Indication: Product used for unknown indication
     Dosage: 100 MG (50MG-100MG 4-6 HRLY)
     Route: 065
  15. AMISULPRIDE [Concomitant]
     Active Substance: AMISULPRIDE
     Route: 065
  16. AMISULPRIDE [Concomitant]
     Active Substance: AMISULPRIDE
     Indication: Product used for unknown indication
     Dosage: 50 MG, QD
     Route: 065
  17. AMLODIPINE [Concomitant]
     Active Substance: AMLODIPINE BESYLATE
     Route: 065
  18. AMLODIPINE [Concomitant]
     Active Substance: AMLODIPINE BESYLATE
     Indication: Product used for unknown indication
     Dosage: 10 MG, QD
     Route: 065
  19. BACLOFEN [Concomitant]
     Active Substance: BACLOFEN
     Dosage: ON HOLD
     Route: 065
  20. BACLOFEN [Concomitant]
     Active Substance: BACLOFEN
     Indication: Product used for unknown indication
     Dosage: 30 MG, TID
     Route: 065
  21. LANOLIN\LIGHT MINERAL OIL\PARAFFIN [Concomitant]
     Active Substance: LANOLIN\LIGHT MINERAL OIL\PARAFFIN
     Indication: Product used for unknown indication
     Dosage: UNK
     Route: 065
  22. ISPAGHULA EXTRACT\PSYLLIUM [Concomitant]
     Active Substance: HERBALS\PLANTAGO OVATA SEED\PLANTAGO SEED
     Indication: Product used for unknown indication
     Dosage: 3.5 G, BID (3.5G SACHETS - 1 BD)
     Route: 065
     Dates: start: 20210920, end: 20210920
  23. LANOLIN ANHYDROUS [Concomitant]
     Active Substance: LANOLIN
     Indication: Product used for unknown indication
     Route: 065
  24. LANSOPRAZOLE [Concomitant]
     Active Substance: LANSOPRAZOLE
     Dosage: MORNING
     Route: 065
  25. LANSOPRAZOLE [Concomitant]
     Active Substance: LANSOPRAZOLE
     Indication: Product used for unknown indication
     Dosage: 30 MG, QMO (30MG GR CAPSULES - 1 OM)
     Route: 065
  26. LEVOTHYROXINE [Concomitant]
     Active Substance: LEVOTHYROXINE\LEVOTHYROXINE SODIUM
     Route: 065
  27. LEVOTHYROXINE [Concomitant]
     Active Substance: LEVOTHYROXINE\LEVOTHYROXINE SODIUM
     Indication: Product used for unknown indication
     Dosage: 175 UG, QMO (100MCG OM, 25MCG OM AND 50MCG OM)
     Route: 065
  28. LOPERAMIDE [Concomitant]
     Active Substance: LOPERAMIDE
     Dosage: 1MG/5ML10 - 20MLS TDS PRN - PATIENT DOESN^T TAKE
     Route: 048
  29. LOPERAMIDE [Concomitant]
     Active Substance: LOPERAMIDE
     Indication: Product used for unknown indication
     Dosage: 20 ML, PRN (10 - 20MLS TDS PRN - PATIENT DOESN^T TAKE)
     Route: 065
  30. NAPROXEN [Concomitant]
     Active Substance: NAPROXEN
     Route: 065
  31. NAPROXEN [Concomitant]
     Active Substance: NAPROXEN
     Indication: Product used for unknown indication
     Dosage: 500 MG, BID
     Route: 065
  32. PARAFFIN [Concomitant]
     Active Substance: PARAFFIN
     Indication: Product used for unknown indication
     Route: 065
  33. MINERAL OIL [Concomitant]
     Active Substance: MINERAL OIL
     Dosage: UNK
     Route: 065
  34. MINERAL OIL [Concomitant]
     Active Substance: MINERAL OIL
     Indication: Product used for unknown indication
     Route: 065
  35. PERINDOPRIL [Concomitant]
     Active Substance: PERINDOPRIL
     Dosage: MORNING
     Route: 065
  36. PERINDOPRIL [Concomitant]
     Active Substance: PERINDOPRIL
     Indication: Product used for unknown indication
     Dosage: 8 MG, QMO
     Route: 065
  37. SILDENAFIL [Concomitant]
     Active Substance: SILDENAFIL
     Dosage: TO BE TAKEN AS DIRECTED - NOT TO BE PRESCRIBED IN HOSPITAL
     Route: 065
  38. SILDENAFIL [Concomitant]
     Active Substance: SILDENAFIL
     Indication: Product used for unknown indication
     Dosage: 100 MG (ONE TO BE TAKEN AS DIRECTED - NOT TO BE PRESCRIBED IN HOSPITAL)
     Route: 065
  39. THIAMINE [Concomitant]
     Active Substance: THIAMINE
     Route: 065
  40. THIAMINE [Concomitant]
     Active Substance: THIAMINE
     Indication: Product used for unknown indication
     Dosage: 100 MG, TID
     Route: 065
  41. WOOL FAT [Concomitant]
     Indication: Product used for unknown indication
     Route: 065

REACTIONS (1)
  - Serotonin syndrome [Unknown]
